FAERS Safety Report 7193955-6 (Version None)
Quarter: 2010Q4

REPORT INFORMATION
  Report Type: 
  Country: None (occurrence: None)
  Receive Date: 20101223
  Receipt Date: 20100913
  Transmission Date: 20110411
  Serious: No
  Sender: FDA-Public Use
  Company Number: US-AMGEN-KDL437874

PATIENT

DRUGS (16)
  1. ENBREL [Suspect]
     Indication: PRODUCT USED FOR UNKNOWN INDICATION
     Dosage: 50 MG, QWK
     Route: 058
  2. ALENDRONATE SODIUM [Concomitant]
     Dosage: 10 MG, UNK
  3. PANTOPRAZOLE SODIUM [Concomitant]
     Dosage: 40 MG, UNK
  4. PAROXETINE HYDROCHLORIDE [Concomitant]
     Dosage: 10 MG, UNK
  5. PREDNISONE [Concomitant]
     Dosage: 10 MG, UNK
  6. LEVOTHYROXINE SODIUM [Concomitant]
     Dosage: 100 MG, UNK
  7. AMOXICILLIN [Concomitant]
     Dosage: 500 MG, UNK
  8. RANITIDINE [Concomitant]
     Dosage: 150 MG, UNK
  9. FOLIC ACID [Concomitant]
     Dosage: 1 MG, UNK
  10. BUPROPION [Concomitant]
     Dosage: 75 MG, UNK
  11. MULTI-VITAMINS [Concomitant]
     Dosage: UNK UNK, UNK
  12. CALCIUM/VITAMIN D [Concomitant]
     Dosage: UNK UNK, UNK
  13. ACETAMINOPHEN [Concomitant]
     Dosage: 325 MG, UNK
  14. METHOTREXATE [Concomitant]
     Dosage: 25 MG, UNK
  15. FOLINIC ACID [Concomitant]
     Dosage: 200 MG, UNK
  16. ASPIRIN [Concomitant]
     Dosage: 81 MG, UNK

REACTIONS (5)
  - COUGH [None]
  - NASAL CONGESTION [None]
  - NASOPHARYNGITIS [None]
  - OROPHARYNGEAL PAIN [None]
  - SECRETION DISCHARGE [None]
